FAERS Safety Report 16965195 (Version 1)
Quarter: 2019Q4

REPORT INFORMATION
  Report Type: Spontaneous
  Country: CN (occurrence: CN)
  Receive Date: 20191028
  Receipt Date: 20191028
  Transmission Date: 20200122
  Serious: Yes (Hospitalization, Disabling)
  Sender: FDA-Public Use
  Company Number: CN-SA-2019SA293551

PATIENT
  Age: 46 Year
  Sex: Female
  Weight: 44 kg

DRUGS (6)
  1. TAXOTERE [Suspect]
     Active Substance: DOCETAXEL
     Dosage: 120 MG  DAY 1
     Dates: start: 20190621
  2. TAXOTERE [Suspect]
     Active Substance: DOCETAXEL
     Dosage: 120 MG, DAY 1
     Dates: start: 20190712
  3. TAXOTERE [Suspect]
     Active Substance: DOCETAXEL
     Indication: GASTRIC CANCER
     Dosage: 60 MG, QD
     Route: 041
     Dates: start: 20190930, end: 20190930
  4. TAXOTERE [Suspect]
     Active Substance: DOCETAXEL
     Dosage: 80 DAY 1
     Dates: start: 20190831
  5. TEGAFUR [Concomitant]
     Active Substance: TEGAFUR
     Dosage: UNK UNK, BID (D1-14 )
     Dates: start: 20190621
  6. TEGAFUR [Concomitant]
     Active Substance: TEGAFUR
     Dosage: UNK UNK, BID  (D1-14 )
     Dates: start: 20190712

REACTIONS (1)
  - Chemical cystitis [Recovering/Resolving]

NARRATIVE: CASE EVENT DATE: 20191009
